FAERS Safety Report 13238030 (Version 1)
Quarter: 2017Q1

REPORT INFORMATION
  Report Type: Spontaneous
  Country: US (occurrence: US)
  Receive Date: 20170215
  Receipt Date: 20170215
  Transmission Date: 20170428
  Serious: Yes (Hospitalization, Other)
  Sender: FDA-Public Use
  Company Number: None

PATIENT
  Age: 35 Year
  Sex: Female
  Weight: 55.8 kg

DRUGS (1)
  1. MIRENA [Suspect]
     Active Substance: LEVONORGESTREL
     Indication: CONTRACEPTION
     Dosage: ?          QUANTITY:1 IUD;OTHER FREQUENCY:ONCE;?
     Route: 067
     Dates: start: 20101020, end: 20121212

REACTIONS (5)
  - Haemorrhage [None]
  - Weight increased [None]
  - Endometriosis [None]
  - Suicidal ideation [None]
  - Abdominal pain [None]

NARRATIVE: CASE EVENT DATE: 20121212
